FAERS Safety Report 6730914-9 (Version None)
Quarter: 2010Q2

REPORT INFORMATION
  Report Type: 
  Country: None (occurrence: None)
  Receive Date: 20100518
  Receipt Date: 20100512
  Transmission Date: 20101027
  Serious: Yes (Hospitalization)
  Sender: FDA-Public Use
  Company Number: PHHO2008DE11910

PATIENT
  Sex: Male
  Weight: 96 kg

DRUGS (7)
  1. STI571/CGP57148B T35717+CAPS [Suspect]
     Indication: PROSTATE CANCER
     Dosage: 400 MG, QD
     Route: 048
     Dates: start: 20080726, end: 20080927
  2. FORTECORTIN [Suspect]
  3. OVASTAT [Suspect]
  4. ARCOXIA [Suspect]
  5. PIOGLITAZONE [Suspect]
     Dosage: 30 MG, 0-2-0
  6. BICALUTAMIDE [Concomitant]
     Dosage: UNK
     Route: 048
     Dates: start: 20051001
  7. TRAMADOL HCL [Concomitant]
     Dosage: 50 MG, 1-0-1

REACTIONS (12)
  - C-REACTIVE PROTEIN INCREASED [None]
  - DIZZINESS [None]
  - DYSPNOEA [None]
  - FATIGUE [None]
  - INFECTION [None]
  - LEFT VENTRICULAR HYPERTROPHY [None]
  - MALIGNANT NEOPLASM PROGRESSION [None]
  - NAUSEA [None]
  - OEDEMA PERIPHERAL [None]
  - PROSTATE CANCER [None]
  - PROSTATIC SPECIFIC ANTIGEN INCREASED [None]
  - VOMITING [None]
